FAERS Safety Report 5499418-8 (Version None)
Quarter: 2007Q4

REPORT INFORMATION
  Report Type: 
  Country: None (occurrence: None)
  Receive Date: 20071026
  Receipt Date: 20071018
  Transmission Date: 20080405
  Serious: Yes (Hospitalization)
  Sender: FDA-Public Use
  Company Number: B0492506A

PATIENT
  Age: 38 Year
  Sex: Male

DRUGS (3)
  1. AUGMENTIN '125' [Suspect]
     Indication: BACTERIA URINE IDENTIFIED
     Dosage: 3G PER DAY
     Route: 048
     Dates: start: 20070711, end: 20070712
  2. OFLOCET [Concomitant]
     Indication: DRUG USE FOR UNKNOWN INDICATION
     Route: 065
     Dates: start: 20070701
  3. CORTICOTHERAPY [Concomitant]
     Route: 065

REACTIONS (8)
  - BLISTER [None]
  - MUCOUS MEMBRANE DISORDER [None]
  - PRURIGO [None]
  - PYREXIA [None]
  - RASH MACULAR [None]
  - SKIN DISORDER [None]
  - STEVENS-JOHNSON SYNDROME [None]
  - TOXIC SKIN ERUPTION [None]
